FAERS Safety Report 9349829 (Version 1)
Quarter: 2013Q2

REPORT INFORMATION
  Report Type: Spontaneous
  Country: US (occurrence: None)
  Receive Date: 20130611
  Receipt Date: 20130611
  Transmission Date: 20140414
  Serious: Yes (Other)
  Sender: FDA-Public Use
  Company Number: 2013AP005703

PATIENT
  Sex: Female

DRUGS (1)
  1. LETROZOLE [Suspect]
     Indication: MASTECTOMY
     Dates: start: 20130520, end: 20130524

REACTIONS (4)
  - Atrial fibrillation [None]
  - Dizziness [None]
  - Dizziness [None]
  - Dyspnoea [None]
